FAERS Safety Report 7729178-9 (Version None)
Quarter: 2011Q3

REPORT INFORMATION
  Report Type: 
  Country: None (occurrence: None)
  Receive Date: 20110906
  Receipt Date: 20110901
  Transmission Date: 20111222
  Serious: No
  Sender: FDA-Public Use
  Company Number: US-PFIZER INC-2011204918

PATIENT
  Sex: Female
  Weight: 63.492 kg

DRUGS (6)
  1. PREMARIN [Suspect]
     Dosage: 0.625 MG, DAILY
     Route: 048
  2. VITAMIN D [Concomitant]
     Indication: VITAMIN D DEFICIENCY
     Dosage: 50000 IU, WEEKLY
     Route: 048
  3. ALPRAZOLAM [Concomitant]
     Indication: ANXIETY
     Dosage: 0.2 MG, AS NEEDED
     Route: 048
  4. PREMARIN [Suspect]
     Dosage: 0.625 MG, DAILY
     Route: 048
     Dates: start: 20110801
  5. PREMARIN [Suspect]
     Dosage: 0.625 MG, DAILY
     Route: 048
     Dates: start: 19810101
  6. PREMARIN [Suspect]
     Dosage: 0.9 MG, DAILY
     Route: 048

REACTIONS (1)
  - DIARRHOEA [None]
